FAERS Safety Report 4976736-0 (Version None)
Quarter: 2006Q2

REPORT INFORMATION
  Report Type: 
  Country: None (occurrence: None)
  Receive Date: 20060419
  Receipt Date: 20051019
  Transmission Date: 20061013
  Serious: Yes (Hospitalization, Disabling)
  Sender: FDA-Public Use
  Company Number: US-MERCK-0510USA08351

PATIENT
  Age: 46 Year
  Sex: Female
  Weight: 82 kg

DRUGS (17)
  1. VIOXX [Suspect]
     Indication: RHEUMATOID ARTHRITIS
     Route: 048
     Dates: start: 20021001, end: 20031019
  2. LEVAQUIN [Concomitant]
     Route: 065
  3. EFFEXOR [Concomitant]
     Route: 065
     Dates: start: 20020701, end: 20030101
  4. ALPRAZOLAM [Concomitant]
     Route: 065
  5. PROTONIX [Concomitant]
     Route: 065
  6. AVELOX [Concomitant]
     Route: 065
  7. DURATUSS [Concomitant]
     Route: 065
  8. TEMAZEPAM [Concomitant]
     Route: 065
  9. DIAZEPAM [Concomitant]
     Route: 065
  10. DEPO-PROVERA SUSPENSION/INJ [Concomitant]
     Route: 065
  11. HYDROCODONE BITARTRATE [Concomitant]
     Indication: ARTHRALGIA
     Route: 065
  12. CIPRO [Concomitant]
     Route: 065
  13. OMEPRAZOLE [Concomitant]
     Route: 065
  14. LIDODERM [Concomitant]
     Route: 065
  15. FOLIC ACID [Concomitant]
     Route: 065
  16. ZELNORM [Concomitant]
     Route: 065
  17. PREDNISONE [Concomitant]
     Indication: ARTHRALGIA
     Route: 065

REACTIONS (10)
  - AORTIC VALVE PROLAPSE [None]
  - CARDIAC DISORDER [None]
  - CARDIAC FAILURE CONGESTIVE [None]
  - CEREBROVASCULAR ACCIDENT [None]
  - DEPRESSION [None]
  - ENDOCARDITIS [None]
  - GASTROINTESTINAL DISORDER [None]
  - MITRAL VALVE PROLAPSE [None]
  - THYROID DISORDER [None]
  - TRANSIENT ISCHAEMIC ATTACK [None]
